FAERS Safety Report 14531066 (Version 1)
Quarter: 2018Q1

REPORT INFORMATION
  Report Type: Spontaneous
  Country: US (occurrence: US)
  Receive Date: 20180213
  Receipt Date: 20180213
  Transmission Date: 20180509
  Serious: Yes (Other)
  Sender: FDA-Public Use
  Company Number: None

PATIENT
  Age: 57 Year
  Sex: Female
  Weight: 56.25 kg

DRUGS (11)
  1. MULTIPLE VITAMIN [Concomitant]
     Active Substance: VITAMINS
  2. BREO ELLIPTA [Concomitant]
     Active Substance: FLUTICASONE FUROATE\VILANTEROL TRIFENATATE
  3. OMEGA 3 [Concomitant]
     Active Substance: OMEGA-3 FATTY ACIDS
  4. FISH OIL [Concomitant]
     Active Substance: FISH OIL
  5. XEOMIN [Suspect]
     Active Substance: INCOBOTULINUMTOXINA
     Indication: EXCESSIVE EYE BLINKING
  6. XIIDRA [Suspect]
     Active Substance: LIFITEGRAST
     Indication: DRY EYE
     Dosage: ?          QUANTITY:1 DROP(S);?
     Route: 047
     Dates: start: 20171011, end: 20180203
  7. XIIDRA [Concomitant]
     Active Substance: LIFITEGRAST
  8. AZELASTINE HCI [Concomitant]
  9. CALCIUM [Concomitant]
     Active Substance: CALCIUM
  10. FEXOFENADINE HCL [Concomitant]
     Active Substance: FEXOFENADINE HYDROCHLORIDE
  11. ASPIRIN. [Concomitant]
     Active Substance: ASPIRIN

REACTIONS (6)
  - Asthenopia [None]
  - Headache [None]
  - Eyelid ptosis [None]
  - Visual impairment [None]
  - Dry eye [None]
  - Vision blurred [None]
